FAERS Safety Report 7163201-8 (Version None)
Quarter: 2010Q4

REPORT INFORMATION
  Report Type: 
  Country: None (occurrence: None)
  Receive Date: 20101210
  Receipt Date: 20101210
  Transmission Date: 20110411
  Serious: Yes (Hospitalization)
  Sender: FDA-Public Use
  Company Number: None

PATIENT
  Age: 55 Year
  Sex: Female
  Weight: 117.028 kg

DRUGS (2)
  1. PRIVIGEN [Suspect]
     Indication: AUTOIMMUNE DISORDER
     Dosage: 10GM/100ML ONCE IV DRIP
     Route: 041
     Dates: start: 20101207, end: 20101207
  2. PRIVIGEN [Suspect]
     Indication: HYPOGAMMAGLOBULINAEMIA
     Dosage: 10GM/100ML ONCE IV DRIP
     Route: 041
     Dates: start: 20101207, end: 20101207

REACTIONS (6)
  - BACTERAEMIA [None]
  - CHEST DISCOMFORT [None]
  - CHILLS [None]
  - PYREXIA [None]
  - TREMOR [None]
  - VOMITING [None]
